FAERS Safety Report 4519183-8 (Version None)
Quarter: 2004Q4

REPORT INFORMATION
  Report Type: 
  Country: None (occurrence: None)
  Receive Date: 20041206
  Receipt Date: 20041125
  Transmission Date: 20050328
  Serious: Yes (Hospitalization, Other)
  Sender: FDA-Public Use
  Company Number: JP-MERCK-0411USA04066

PATIENT
  Age: 47 Year
  Sex: Male

DRUGS (6)
  1. SINGULAIR [Suspect]
     Indication: ASTHMA
     Route: 048
     Dates: start: 20041108, end: 20041117
  2. GATIFLOXACIN [Suspect]
     Route: 048
     Dates: start: 20041108, end: 20041114
  3. CARBOCYSTEINE [Concomitant]
     Route: 048
     Dates: start: 20041108
  4. AMBROXOL HYDROCHLORIDE [Concomitant]
     Route: 048
     Dates: start: 20041108, end: 20041122
  5. BECLOMETHASONE DIPROPIONATE [Concomitant]
     Route: 055
     Dates: start: 20041108
  6. GUANABENZ ACETATE [Concomitant]
     Route: 048
     Dates: end: 20041122

REACTIONS (1)
  - ALLERGIC GRANULOMATOUS ANGIITIS [None]
